FAERS Safety Report 8174433-4 (Version None)
Quarter: 2012Q1

REPORT INFORMATION
  Report Type: 
  Country: None (occurrence: None)
  Receive Date: 20120229
  Receipt Date: 20120222
  Transmission Date: 20120608
  Serious: Yes (Hospitalization)
  Sender: FDA-Public Use
  Company Number: SE-EISAI INC-E2020-10396-SPO-SE

PATIENT
  Age: 81 Year
  Sex: Male

DRUGS (4)
  1. ARICEPT [Suspect]
     Route: 048
  2. FUROSEMIDE [Concomitant]
     Route: 048
  3. POTASSIUM CHLORIDE [Concomitant]
     Route: 048
  4. FUROSEMIDE [Concomitant]
     Route: 048

REACTIONS (3)
  - CARDIAC FAILURE [None]
  - VOMITING [None]
  - PLEURAL EFFUSION [None]
